FAERS Safety Report 6865796-8 (Version None)
Quarter: 2010Q3

REPORT INFORMATION
  Report Type: 
  Country: None (occurrence: None)
  Receive Date: 20100720
  Receipt Date: 20100706
  Transmission Date: 20110219
  Serious: Yes (Hospitalization, Disabling)
  Sender: FDA-Public Use
  Company Number: 2010P1000183

PATIENT
  Age: 56 Year
  Sex: Female

DRUGS (8)
  1. FENTANYL INJECTABLE (NO PREF. NAME) [Suspect]
     Indication: PAIN
     Dosage: 2 MCG/ML; ED
     Route: 008
  2. LEVOBUPIVACAINE (NO PREF. NAME) [Suspect]
     Indication: PAIN
     Dosage: 2 MCG/ML OR 1 MG/ML; ED
     Route: 008
  3. AMITRIPTYLINE HYDROCHLORIDE [Concomitant]
  4. FUROSEMIDE [Concomitant]
  5. LEVOTHYROXINE SODIUM [Concomitant]
  6. SODIUM [Concomitant]
  7. SIMVASTATIN [Concomitant]
  8. ZOPICLONE [Concomitant]

REACTIONS (2)
  - ANAESTHETIC COMPLICATION [None]
  - PARALYSIS [None]
